FAERS Safety Report 4366061-3 (Version None)
Quarter: 2004Q2

REPORT INFORMATION
  Report Type: 
  Country: None (occurrence: None)
  Receive Date: 20040524
  Receipt Date: 20040513
  Transmission Date: 20050107
  Serious: Yes (Other)
  Sender: FDA-Public Use
  Company Number: 7996

PATIENT

DRUGS (3)
  1. CISPLATIN [Suspect]
  2. ETOPOSIDE [Suspect]
  3. CYTARABINE [Suspect]

REACTIONS (4)
  - ANAEMIA NEONATAL [None]
  - DRUG EXPOSURE DURING PREGNANCY [None]
  - JAUNDICE NEONATAL [None]
  - PREMATURE BABY [None]
